FAERS Safety Report 13561981 (Version 3)
Quarter: 2020Q2

REPORT INFORMATION
  Report Type: Report from Study
  Country: US (occurrence: US)
  Receive Date: 20170518
  Receipt Date: 20200520
  Transmission Date: 20200713
  Serious: Yes (Other)
  Sender: FDA-Public Use
  Company Number: PHHY2016US084025

PATIENT
  Age: 35 Year
  Sex: Female

DRUGS (1)
  1. GILENYA [Suspect]
     Active Substance: FINGOLIMOD HYDROCHLORIDE
     Indication: MULTIPLE SCLEROSIS
     Dosage: UNK, QD
     Route: 048

REACTIONS (8)
  - Heart rate increased [Recovered/Resolved]
  - Palpitations [Recovered/Resolved]
  - Supraventricular extrasystoles [Recovered/Resolved]
  - Angina pectoris [Recovered/Resolved]
  - Allergy to arthropod sting [Unknown]
  - White blood cell count decreased [Unknown]
  - Supraventricular extrasystoles [Recovered/Resolved]
  - Uhthoff^s phenomenon [Unknown]

NARRATIVE: CASE EVENT DATE: 20160229
